FAERS Safety Report 8924758 (Version 2)
Quarter: 2013Q1

REPORT INFORMATION
  Report Type: Spontaneous
  Country: US (occurrence: US)
  Receive Date: 20121126
  Receipt Date: 20130206
  Transmission Date: 20140127
  Serious: Yes (Hospitalization)
  Sender: FDA-Public Use
  Company Number: US-ELI_LILLY_AND_COMPANY-US201211005315

PATIENT
  Sex: Male
  Weight: 102.9 kg

DRUGS (6)
  1. HUMALOG LISPRO [Suspect]
     Indication: DIABETES MELLITUS
     Dosage: UNK UNK, TID
     Dates: start: 201103
  2. HUMALOG [Concomitant]
  3. LANTUS [Concomitant]
  4. LISINOPRIL [Concomitant]
  5. GABAPENTIN [Concomitant]
  6. ASPIRIN [Concomitant]

REACTIONS (2)
  - Osteomyelitis [Recovered/Resolved with Sequelae]
  - Blood glucose increased [Recovering/Resolving]
